FAERS Safety Report 8196224-0 (Version None)
Quarter: 2012Q1

REPORT INFORMATION
  Report Type: 
  Country: None (occurrence: None)
  Receive Date: 20120306
  Receipt Date: 20120223
  Transmission Date: 20120608
  Serious: Yes (Other)
  Sender: FDA-Public Use
  Company Number: WAES1202USA04090

PATIENT
  Age: 8 Year
  Sex: Male

DRUGS (3)
  1. PEGASPARGASE [Suspect]
     Indication: ACUTE LYMPHOCYTIC LEUKAEMIA
     Route: 030
  2. VINCRISTINE SULFATE [Concomitant]
  3. DECADRON [Suspect]
     Indication: ACUTE LYMPHOCYTIC LEUKAEMIA
     Dosage: 6 MG/M[2]/DAILY
     Route: 048

REACTIONS (2)
  - HYPONATRAEMIA [None]
  - HYPERTRIGLYCERIDAEMIA [None]
